FAERS Safety Report 7170332-5 (Version None)
Quarter: 2010Q4

REPORT INFORMATION
  Report Type: 
  Country: None (occurrence: None)
  Receive Date: 20101217
  Receipt Date: 20101210
  Transmission Date: 20110411
  Serious: Yes (Death)
  Sender: FDA-Public Use
  Company Number: JP-ROCHE-732418

PATIENT
  Sex: Male
  Weight: 70 kg

DRUGS (11)
  1. AVASTIN [Suspect]
     Indication: LUNG ADENOCARCINOMA METASTATIC
     Route: 041
     Dates: start: 20100917, end: 20100917
  2. CARBOPLATIN [Concomitant]
     Route: 041
     Dates: start: 20100917, end: 20100917
  3. PACLITAXEL [Concomitant]
     Route: 041
     Dates: start: 20100917, end: 20100917
  4. ADALAT CC [Concomitant]
     Dosage: DOSE FORM: SUSTAINED-RELEASE TABLET
     Route: 048
     Dates: end: 20101004
  5. NU-LOTAN [Concomitant]
     Route: 048
     Dates: end: 20101004
  6. SUNRYTHM [Concomitant]
     Route: 048
     Dates: end: 20101004
  7. METHYCOBAL [Concomitant]
     Dosage: DOSE FORM: PERORAL AGENT
     Route: 048
     Dates: end: 20101004
  8. OXYCONTIN [Concomitant]
     Dosage: DOSE FORM: SUSTAINED-RELEASE TABLET
     Route: 048
     Dates: start: 20100907, end: 20101004
  9. MAGLAX [Concomitant]
     Route: 048
     Dates: start: 20100907, end: 20101004
  10. LOXOPROFEN [Concomitant]
     Dosage: DOSE FORM: PERORAL AGENT
     Route: 048
     Dates: start: 20100907, end: 20101004
  11. OXINORM [Concomitant]
     Dosage: NOTE: SINGLE USE
     Route: 048
     Dates: start: 20100907, end: 20101004

REACTIONS (11)
  - ASPIRATION [None]
  - BLOOD PRESSURE DECREASED [None]
  - CARDIO-RESPIRATORY ARREST [None]
  - GASTRITIS EROSIVE [None]
  - GENERAL PHYSICAL HEALTH DETERIORATION [None]
  - HAEMATEMESIS [None]
  - HAEMOPTYSIS [None]
  - HEART RATE INCREASED [None]
  - PERFORMANCE STATUS DECREASED [None]
  - PERITONITIS [None]
  - PYREXIA [None]
